FAERS Safety Report 7796751-1 (Version None)
Quarter: 2011Q4

REPORT INFORMATION
  Report Type: 
  Country: None (occurrence: None)
  Receive Date: 20111005
  Receipt Date: 20110929
  Transmission Date: 20120403
  Serious: Yes (Hospitalization, Other)
  Sender: FDA-Public Use
  Company Number: JP-PFIZER INC-2011233004

PATIENT
  Sex: Male

DRUGS (3)
  1. ZOLPIDEM [Concomitant]
     Dosage: UNK
  2. DEPAS [Concomitant]
     Dosage: UNK
  3. LYRICA [Suspect]
     Indication: PAIN
     Dosage: 225 MG/DAY
     Route: 048
     Dates: start: 20110810, end: 20110830

REACTIONS (2)
  - GENERALISED OEDEMA [None]
  - PLEURAL EFFUSION [None]
